FAERS Safety Report 15110248 (Version 1)
Quarter: 2018Q3

REPORT INFORMATION
  Report Type: Spontaneous
  Country: IT (occurrence: IT)
  Receive Date: 20180705
  Receipt Date: 20180705
  Transmission Date: 20181010
  Serious: Yes (Hospitalization)
  Sender: FDA-Public Use
  Company Number: IT-PFIZER INC-2018269544

PATIENT
  Age: 64 Year
  Sex: Male
  Weight: 83 kg

DRUGS (1)
  1. METHOTREXATE SODIUM. [Suspect]
     Active Substance: METHOTREXATE SODIUM
     Indication: LYMPHOMA
     Dosage: 1500 MG/M2, CYCLIC
     Route: 042
     Dates: start: 20180515, end: 20180515

REACTIONS (3)
  - Glomerulonephritis [Recovered/Resolved]
  - Renal tubular disorder [Recovered/Resolved]
  - Renal failure [Recovered/Resolved]

NARRATIVE: CASE EVENT DATE: 20180517
